FAERS Safety Report 25774850 (Version 1)
Quarter: 2025Q3

REPORT INFORMATION
  Report Type: Spontaneous
  Country: EU (occurrence: EU)
  Receive Date: 20250908
  Receipt Date: 20250908
  Transmission Date: 20251020
  Serious: Yes (Other)
  Sender: INCYTE
  Company Number: EU-002147023-NVSC2025BE137097

PATIENT

DRUGS (1)
  1. RUXOLITINIB [Suspect]
     Active Substance: RUXOLITINIB
     Indication: Adenosine deaminase 2 deficiency
     Dosage: 10 MG, BID
     Route: 065

REACTIONS (3)
  - Neutropenia [Unknown]
  - Off label use [Unknown]
  - Therapeutic response unexpected [Unknown]
